FAERS Safety Report 5943646-1 (Version None)
Quarter: 2008Q4

REPORT INFORMATION
  Report Type: 
  Country: None (occurrence: None)
  Receive Date: 20081106
  Receipt Date: 20081030
  Transmission Date: 20090506
  Serious: Yes (Hospitalization)
  Sender: FDA-Public Use
  Company Number: US-GENENTECH-270529

PATIENT
  Age: 56 Year
  Sex: Male

DRUGS (18)
  1. RITUXAN [Suspect]
     Indication: FACTOR VIII DEFICIENCY
     Dosage: 375 MG/M2, 1/WEEK
     Route: 042
     Dates: start: 20080930
  2. PLAVIX [Concomitant]
     Indication: DRUG USE FOR UNKNOWN INDICATION
  3. ALLOPURINOL [Concomitant]
     Indication: DRUG USE FOR UNKNOWN INDICATION
  4. NORVASC [Concomitant]
     Indication: DRUG USE FOR UNKNOWN INDICATION
  5. ASPIRIN [Concomitant]
     Indication: DRUG USE FOR UNKNOWN INDICATION
  6. DECLOMYCIN [Concomitant]
     Indication: DRUG USE FOR UNKNOWN INDICATION
  7. IRON SULFATETHIAMIN COMPOUND TAB [Concomitant]
     Indication: DRUG USE FOR UNKNOWN INDICATION
  8. LASIX [Concomitant]
     Indication: DRUG USE FOR UNKNOWN INDICATION
  9. ROBINUL [Concomitant]
     Indication: DRUG USE FOR UNKNOWN INDICATION
  10. MEGACE [Concomitant]
     Indication: DRUG USE FOR UNKNOWN INDICATION
  11. REGLAN [Concomitant]
     Indication: DRUG USE FOR UNKNOWN INDICATION
  12. LOPRESSOR [Concomitant]
     Indication: DRUG USE FOR UNKNOWN INDICATION
  13. PROTONIX [Concomitant]
     Indication: DRUG USE FOR UNKNOWN INDICATION
  14. PREDNISONE TAB [Concomitant]
     Indication: DRUG USE FOR UNKNOWN INDICATION
  15. SODIUM CHLORIDE 0.9% [Concomitant]
     Indication: DRUG USE FOR UNKNOWN INDICATION
  16. KYTRIL [Concomitant]
     Indication: DRUG USE FOR UNKNOWN INDICATION
  17. LEVOFLOXACIN [Concomitant]
     Indication: DRUG USE FOR UNKNOWN INDICATION
  18. AMBIEN [Concomitant]
     Indication: DRUG USE FOR UNKNOWN INDICATION

REACTIONS (1)
  - COLITIS ISCHAEMIC [None]
